FAERS Safety Report 5313100-9 (Version None)
Quarter: 2007Q2

REPORT INFORMATION
  Report Type: 
  Country: None (occurrence: None)
  Receive Date: 20070430
  Receipt Date: 20070418
  Transmission Date: 20071010
  Serious: Yes (Other)
  Sender: FDA-Public Use
  Company Number: US-PFIZER INC-2007031961

PATIENT
  Sex: Female
  Weight: 136.1 kg

DRUGS (2)
  1. DILANTIN [Suspect]
     Indication: EPILEPSY
  2. LYRICA [Suspect]
     Indication: EPILEPSY

REACTIONS (1)
  - CONVULSION [None]
